FAERS Safety Report 9172904 (Version 3)
Quarter: 2013Q2

REPORT INFORMATION
  Report Type: Report from Study
  Country: JP (occurrence: JP)
  Receive Date: 20130319
  Receipt Date: 20130423
  Transmission Date: 20140414
  Serious: Yes (Hospitalization, Other)
  Sender: FDA-Public Use
  Company Number: JP-OTSUKA-JP-2013-10641

PATIENT
  Age: 77 Year
  Sex: Female
  Weight: 51 kg

DRUGS (39)
  1. SAMSCA [Suspect]
     Indication: FLUID RETENTION
     Dosage: 7.5 MG MILLIGRAM(S), QAM
     Route: 048
     Dates: start: 20121225, end: 20130103
  2. MECOBALAMIN [Concomitant]
     Dosage: 1500 MCG, DAILY DOSE
     Route: 048
     Dates: end: 20121227
  3. NICORAKKOTO [Concomitant]
     Dosage: 15 MG MILLIGRAM(S), DAILY DOSE
     Route: 048
     Dates: end: 20121227
  4. INOVAN [Concomitant]
     Indication: CARDIAC FAILURE
     Dosage: 612 MG MILLIGRAM(S), DAILY DOSE
     Route: 041
     Dates: end: 20130103
  5. ASPARA POTASSIUM [Concomitant]
     Dosage: 3 G GRAM(S), DAILY DOSE
     Route: 048
  6. ALDACTONE A [Concomitant]
     Indication: CARDIAC FAILURE
     Dosage: 50 MG MILLIGRAM(S), DAILY DOSE
     Route: 048
  7. ROCALCITOL [Concomitant]
     Dosage: 0.5 MG MILLIGRAM(S), DAILY DOSE
     Route: 048
  8. ASPARTATE [Concomitant]
     Dosage: 200 MG MILLIGRAM(S), DAILY DOSE
     Route: 048
  9. METHYCOBAL [Concomitant]
     Dosage: 1500 MCG, DAILY DOSE
     Route: 048
  10. MUCOSTA [Concomitant]
     Indication: PROPHYLAXIS
     Dosage: 300 MG MILLIGRAM(S), DAILY DOSE
     Route: 048
  11. ALINAMIN F [Concomitant]
     Dosage: 3 DF DOSAGE FORM, DAILY DOSE
     Route: 048
  12. BAYASPIRIN [Concomitant]
     Dosage: 100 MG MILLIGRAM(S), DAILY DOSE
     Route: 048
  13. PLAVIX [Concomitant]
     Dosage: 75 MG MILLIGRAM(S), DAILY DOSE
     Route: 048
  14. NEXIUM [Concomitant]
     Indication: PROPHYLAXIS
     Dosage: 20 MG MILLIGRAM(S), DAILY DOSE
     Route: 048
  15. ITOROL [Concomitant]
     Dosage: 40 MG MILLIGRAM(S), DAILY DOSE
     Route: 048
  16. RENIVACE [Concomitant]
     Dosage: 5 MG MILLIGRAM(S), DAILY DOSE
     Route: 048
  17. LUPRAC [Concomitant]
     Indication: CARDIAC FAILURE
     Dosage: 8 MG MILLIGRAM(S), DAILY DOSE
     Route: 048
  18. SOLDEM 3A [Concomitant]
     Dosage: + POTASSIUM L-ASPARTATE 9.6 MEQ/DAY
     Route: 041
  19. ARMOKARIN [Concomitant]
     Dosage: + MAINTENANCE MEDIUM 9.6 MEQ/DAY
     Route: 041
  20. HEPARIN [Concomitant]
     Indication: CORONARY ANGIOPLASTY
     Dosage: 12 KIU IU(1000S), DAILY DOSE
     Route: 041
  21. HEPARIN [Concomitant]
     Dosage: + ISOTONIC SODIUM CHLORIDE SOLUTION 14400 U/DAY
     Route: 041
  22. SEISHOKU [Concomitant]
     Indication: CORONARY ANGIOPLASTY
     Dosage: + HEPARIN 14400 U/DAY
     Route: 041
  23. SEISHOKU [Concomitant]
     Dosage: + FUROSEMIDE 36 MG/DAY
     Route: 041
  24. SEISHOKU [Concomitant]
     Dosage: + LANDIOLOL HYDROCHLORIDE 216 MG/DAY
     Route: 041
     Dates: start: 20130103
  25. CEFAMEZIN [Concomitant]
     Indication: PROPHYLAXIS
     Dosage: 20 G GRAM(S), DAILY DOSE
     Route: 042
  26. NOVORAPID [Concomitant]
     Dosage: 31 IU, DAILY DOSE
     Route: 058
  27. HUMULIN R [Concomitant]
     Dosage: 6 IU, DAILY DOSE
     Route: 058
  28. LASIX [Concomitant]
     Dosage: + ISOTONIC SODIUM CHLORIDE SOLUTION 36 MG/DAY
     Route: 041
  29. ELIETEN [Concomitant]
     Indication: CORONARY ANGIOPLASTY
     Dosage: 10 MG MILLIGRAM(S), DAILY DOSE
     Route: 042
  30. IMAGENIL [Concomitant]
     Indication: CORONARY ANGIOPLASTY
     Dosage: 100 ML MILLILITRE(S), DAILY DOSE
     Dates: start: 20121219, end: 20121219
  31. ALBUMINAR [Concomitant]
     Indication: CORONARY ANGIOPLASTY
     Dosage: 500 ML MILLILITRE(S), DAILY DOSE
     Route: 042
     Dates: start: 20121219, end: 20121219
  32. SOSEGON [Concomitant]
     Indication: CORONARY ANGIOPLASTY
     Dosage: 15 ML MILLILITRE(S), DAILY DOSE
     Route: 042
     Dates: start: 20121219, end: 20121219
  33. MYOCOR [Concomitant]
     Indication: CORONARY ANGIOPLASTY
     Dosage: 0.1 MG MILLIGRAM(S), DAILY DOSE
     Dates: start: 20121219, end: 20121219
  34. EFFORTIL [Concomitant]
     Indication: CORONARY ANGIOPLASTY
     Dosage: 1 MG MILLIGRAM(S), DAILY DOSE
     Route: 042
     Dates: start: 20121219, end: 20121219
  35. RED CELLS MAP [Concomitant]
     Indication: CORONARY ANGIOPLASTY
     Dosage: 400 ML MILLILITRE(S), DAILY DOSE
     Route: 042
     Dates: start: 20121219, end: 20121219
  36. SIGMART [Concomitant]
     Dosage: 15 MG MILLIGRAM(S), DAILY DOSE
     Route: 048
     Dates: start: 20121228
  37. ONOACT [Concomitant]
     Dosage: + ISOTONIC SODIUM CHLORIDE SOLUTION 216 MG/DAY
     Route: 042
     Dates: start: 20130103
  38. DOPAMINE [Concomitant]
     Dosage: UNK
     Route: 041
     Dates: end: 20130103
  39. LECICARBON [Concomitant]
     Dosage: 1 DF DOSAGE FORM, DAILY DOSE
     Route: 054
     Dates: start: 20130103, end: 20130103

REACTIONS (5)
  - Renal impairment [Recovered/Resolved]
  - Ventricular tachycardia [Recovered/Resolved]
  - Supraventricular tachycardia [Recovered/Resolved]
  - Blood uric acid increased [Recovered/Resolved]
  - Loss of consciousness [Recovered/Resolved]
